FAERS Safety Report 7004815-5 (Version None)
Quarter: 2010Q3

REPORT INFORMATION
  Report Type: 
  Country: None (occurrence: None)
  Receive Date: 20100921
  Receipt Date: 20100914
  Transmission Date: 20110219
  Serious: Yes (Other)
  Sender: FDA-Public Use
  Company Number: US-ASTRAZENECA-2007UW18868

PATIENT
  Age: 11471 Day
  Sex: Male
  Weight: 72.6 kg

DRUGS (32)
  1. SEROQUEL [Suspect]
     Indication: BIPOLAR DISORDER
     Route: 048
     Dates: start: 20021201, end: 20060801
  2. SEROQUEL [Suspect]
     Indication: ANXIETY
     Route: 048
     Dates: start: 20021201, end: 20060801
  3. SEROQUEL [Suspect]
     Indication: SLEEP DISORDER
     Route: 048
     Dates: start: 20021201, end: 20060801
  4. SEROQUEL [Suspect]
     Dosage: 50 - 1400 MG DAILY
     Route: 048
     Dates: start: 20021227
  5. SEROQUEL [Suspect]
     Dosage: 50 - 1400 MG DAILY
     Route: 048
     Dates: start: 20021227
  6. SEROQUEL [Suspect]
     Dosage: 50 - 1400 MG DAILY
     Route: 048
     Dates: start: 20021227
  7. SEROQUEL [Suspect]
     Dosage: 150 MG TO 2000 MG
     Route: 048
     Dates: start: 20021230, end: 20060726
  8. SEROQUEL [Suspect]
     Dosage: 150 MG TO 2000 MG
     Route: 048
     Dates: start: 20021230, end: 20060726
  9. SEROQUEL [Suspect]
     Dosage: 150 MG TO 2000 MG
     Route: 048
     Dates: start: 20021230, end: 20060726
  10. SEROQUEL [Suspect]
     Route: 048
     Dates: start: 20040917
  11. SEROQUEL [Suspect]
     Route: 048
     Dates: start: 20040917
  12. SEROQUEL [Suspect]
     Route: 048
     Dates: start: 20040917
  13. SEROQUEL [Suspect]
     Route: 048
     Dates: start: 20050719
  14. SEROQUEL [Suspect]
     Route: 048
     Dates: start: 20050719
  15. SEROQUEL [Suspect]
     Route: 048
     Dates: start: 20050719
  16. TOPAMAX [Concomitant]
     Indication: WEIGHT CONTROL
     Route: 048
     Dates: start: 20030131
  17. DEPAKOTE [Concomitant]
     Dosage: 200 - 2000 MG DAILY
     Route: 048
     Dates: start: 20021227
  18. DEPAKOTE [Concomitant]
  19. KLONOPIN [Concomitant]
     Dosage: 2 - 30 MG DAILY
     Route: 048
     Dates: start: 20021227
  20. LISINOPRIL [Concomitant]
     Route: 048
     Dates: start: 20060123
  21. TOPROL-XL [Concomitant]
     Route: 048
     Dates: start: 20060123
  22. LIPITOR [Concomitant]
     Route: 048
     Dates: start: 20060123
  23. BENADRYL [Concomitant]
     Indication: SLEEP DISORDER
     Dates: start: 20021227
  24. NICOTINE [Concomitant]
     Indication: WITHDRAWAL SYNDROME
     Route: 062
     Dates: start: 20021227
  25. ZOLOFT [Concomitant]
     Dates: start: 20010101
  26. METFORMIN [Concomitant]
     Dates: start: 20050719
  27. GLIPIZIDE [Concomitant]
     Dates: start: 20050719
  28. LOVASTATIN [Concomitant]
     Dates: start: 20050719
  29. LITHIUM CARBONATE [Concomitant]
     Dates: start: 20050719
  30. LAMICTAL [Concomitant]
     Dates: start: 20050719
  31. ZYPREXA [Concomitant]
     Dates: start: 20030604, end: 20030709
  32. ABILIFY [Concomitant]
     Dates: start: 20030201

REACTIONS (28)
  - ANAEMIA [None]
  - ARTHRALGIA [None]
  - CHEST PAIN [None]
  - DEHYDRATION [None]
  - DIABETES MELLITUS [None]
  - DYSPHAGIA [None]
  - EAR DISORDER [None]
  - GASTRIC DISORDER [None]
  - HEADACHE [None]
  - IMPAIRED HEALING [None]
  - INSOMNIA [None]
  - INSULIN RESISTANCE [None]
  - INSULIN-REQUIRING TYPE 2 DIABETES MELLITUS [None]
  - JOINT INJURY [None]
  - LYMPHADENOPATHY [None]
  - OBESITY [None]
  - ORAL PAIN [None]
  - PYREXIA [None]
  - RASH GENERALISED [None]
  - ROAD TRAFFIC ACCIDENT [None]
  - SLEEP APNOEA SYNDROME [None]
  - TOOTH DISORDER [None]
  - TYPE 1 DIABETES MELLITUS [None]
  - TYPE 2 DIABETES MELLITUS [None]
  - VOMITING [None]
  - WEIGHT DECREASED [None]
  - WEIGHT INCREASED [None]
  - WOUND [None]
